FAERS Safety Report 19550710 (Version 1)
Quarter: 2021Q3

REPORT INFORMATION
  Report Type: Spontaneous
  Country: GB (occurrence: GB)
  Receive Date: 20210715
  Receipt Date: 20210715
  Transmission Date: 20211014
  Serious: Yes (Other)
  Sender: FDA-Public Use
  Company Number: GB-AUROBINDO-AUR-APL-2021-029628

PATIENT
  Age: 57 Year
  Sex: Male
  Weight: 92.07 kg

DRUGS (3)
  1. GABAPENTIN. [Suspect]
     Active Substance: GABAPENTIN
     Indication: POSTOPERATIVE ANALGESIA
     Dosage: UNK
     Route: 048
     Dates: start: 2005, end: 2017
  2. LYRICA [Suspect]
     Active Substance: PREGABALIN
     Indication: POSTOPERATIVE ANALGESIA
     Dosage: UNK
     Route: 048
     Dates: start: 2005, end: 2017
  3. VORTIOXETINE. [Concomitant]
     Active Substance: VORTIOXETINE
     Indication: PRODUCT USED FOR UNKNOWN INDICATION
     Dosage: UNK
     Route: 065

REACTIONS (11)
  - Hypersensitivity [Unknown]
  - Libido decreased [Unknown]
  - Psychomotor hyperactivity [Unknown]
  - Libido increased [Unknown]
  - Suicidal ideation [Unknown]
  - Self-injurious ideation [Unknown]
  - Euphoric mood [Unknown]
  - Anxiety [Unknown]
  - Depression [Unknown]
  - Hypersexuality [Recovered/Resolved]
  - Suicide attempt [Unknown]

NARRATIVE: CASE EVENT DATE: 2010
